FAERS Safety Report 24259601 (Version 1)
Quarter: 2024Q3

REPORT INFORMATION
  Report Type: Spontaneous
  Country: US (occurrence: None)
  Receive Date: 20240828
  Receipt Date: 20240828
  Transmission Date: 20241016
  Serious: Yes (Other)
  Sender: ASTRAZENECA
  Company Number: 2024A193880

PATIENT
  Age: 70 Year
  Sex: Male
  Weight: 75.3 kg

DRUGS (3)
  1. OLAPARIB [Suspect]
     Active Substance: OLAPARIB
     Indication: Hormone-refractory prostate cancer
     Route: 048
     Dates: start: 202202, end: 202204
  2. VUDALIMAB [Suspect]
     Active Substance: VUDALIMAB
     Indication: Adenocarcinoma
  3. CABAZITAXEL [Suspect]
     Active Substance: CABAZITAXEL
     Indication: Adenocarcinoma

REACTIONS (22)
  - Malignant neoplasm progression [Unknown]
  - Metastases to bone [Unknown]
  - Anaemia [Unknown]
  - Lymphocyte count decreased [Unknown]
  - Blood alkaline phosphatase increased [Unknown]
  - Arthralgia [Unknown]
  - Peripheral motor neuropathy [Unknown]
  - Hyperglycaemia [Unknown]
  - Dry mouth [Unknown]
  - Hypercalcaemia [Recovered/Resolved]
  - Pyrexia [Recovered/Resolved]
  - Fatigue [Unknown]
  - Dyspnoea [Unknown]
  - Hyperphosphataemia [Unknown]
  - Hyperuricaemia [Unknown]
  - Platelet count decreased [Unknown]
  - Mental status changes [Unknown]
  - Lethargy [Unknown]
  - Asthenia [Unknown]
  - Arthralgia [Unknown]
  - Back pain [Unknown]
  - Hypertension [Unknown]

NARRATIVE: CASE EVENT DATE: 20180101
